FAERS Safety Report 16613887 (Version 1)
Quarter: 2019Q3

REPORT INFORMATION
  Report Type: Spontaneous
  Country: DE (occurrence: DE)
  Receive Date: 20190723
  Receipt Date: 20190723
  Transmission Date: 20191004
  Serious: Yes (Hospitalization, Other)
  Sender: FDA-Public Use
  Company Number: DE-ACTELION-A-CH2019-193178

PATIENT
  Age: 54 Year
  Sex: Female
  Weight: 91.8 kg

DRUGS (14)
  1. REVATIO [Concomitant]
     Active Substance: SILDENAFIL CITRATE
     Indication: PULMONARY ARTERIAL HYPERTENSION
     Dosage: 20 MG, TID
  2. HYDROCHLOROTHIAZIDE. [Concomitant]
     Active Substance: HYDROCHLOROTHIAZIDE
     Dosage: 25 MG, QD
  3. ATORVASTATIN [Concomitant]
     Active Substance: ATORVASTATIN
     Dosage: 20 MG, QD
  4. NOVALGIN [Concomitant]
  5. OPSUMIT [Suspect]
     Active Substance: MACITENTAN
     Indication: PULMONARY ARTERIAL HYPERTENSION
     Route: 048
  6. MARCUMAR [Concomitant]
     Active Substance: PHENPROCOUMON
  7. PANTOPRAZOLE [Concomitant]
     Active Substance: PANTOPRAZOLE
     Dosage: 40 MG, QD
  8. MOVICOL [Concomitant]
     Active Substance: POLYETHYLENE GLYCOL 3350\POTASSIUM CHLORIDE\SODIUM BICARBONATE\SODIUM CHLORIDE
  9. ALDACTONE [Concomitant]
     Active Substance: SPIRONOLACTONE
     Dosage: 25 MG, QD
  10. METOPROLOL SUCCINATE. [Concomitant]
     Active Substance: METOPROLOL SUCCINATE
     Dosage: 0.25 DF, QD
  11. RENVELA [Concomitant]
     Active Substance: SEVELAMER CARBONATE
     Dosage: 2.4 G, TID
  12. TOREM [Concomitant]
     Active Substance: TORSEMIDE
     Dosage: 200 MG, QD
  13. INSULIN HUMAN [Concomitant]
     Active Substance: INSULIN HUMAN
  14. ACTRAPID [Concomitant]
     Active Substance: INSULIN HUMAN
     Dosage: UNK, PRN

REACTIONS (33)
  - Generalised oedema [Recovering/Resolving]
  - Induration [Recovered/Resolved]
  - Norovirus test positive [Recovered/Resolved]
  - Hypotension [Recovering/Resolving]
  - Anuria [Not Recovered/Not Resolved]
  - Device dislocation [Unknown]
  - Urinary tract infection [Unknown]
  - Hyponatraemia [Not Recovered/Not Resolved]
  - Peripheral artery occlusion [Recovered/Resolved]
  - Haematoma [Recovered/Resolved]
  - Diarrhoea [Recovered/Resolved]
  - Weight increased [Recovering/Resolving]
  - Gastroenteritis norovirus [Recovered/Resolved]
  - Abdominal distension [Not Recovered/Not Resolved]
  - Catheter placement [Not Recovered/Not Resolved]
  - Klebsiella infection [Unknown]
  - Fluid overload [Not Recovered/Not Resolved]
  - Peripheral ischaemia [Recovered/Resolved]
  - Gait disturbance [Unknown]
  - Pulmonary congestion [Unknown]
  - Dehydration [Recovered/Resolved]
  - Oedema peripheral [Unknown]
  - Cardiorenal syndrome [Unknown]
  - Concomitant disease aggravated [Not Recovered/Not Resolved]
  - Right ventricular failure [Recovering/Resolving]
  - Fatigue [Recovering/Resolving]
  - Concomitant disease progression [Not Recovered/Not Resolved]
  - Acute kidney injury [Not Recovered/Not Resolved]
  - Asthenia [Recovering/Resolving]
  - General physical condition decreased [Recovering/Resolving]
  - Dialysis [Not Recovered/Not Resolved]
  - Pulse absent [Unknown]
  - C-reactive protein increased [Unknown]

NARRATIVE: CASE EVENT DATE: 201603
